FAERS Safety Report 18151128 (Version 1)
Quarter: 2020Q3

REPORT INFORMATION
  Report Type: Spontaneous
  Country: US (occurrence: US)
  Receive Date: 20200814
  Receipt Date: 20200814
  Transmission Date: 20201103
  Serious: No
  Sender: FDA-Public Use
  Company Number: US-PFIZER INC-2020313079

PATIENT
  Age: 65 Year
  Sex: Female

DRUGS (3)
  1. ALPRAZOLAM. [Suspect]
     Active Substance: ALPRAZOLAM
     Dosage: 1 MG
  2. ALPRAZOLAM. [Suspect]
     Active Substance: ALPRAZOLAM
     Dosage: 2 MG
  3. ALPRAZOLAM. [Suspect]
     Active Substance: ALPRAZOLAM
     Dosage: 1 DF, 3X/DAY (ONE THREE TIMES A DAY)

REACTIONS (6)
  - Eye swelling [Unknown]
  - Drug ineffective [Unknown]
  - Hypertension [Unknown]
  - Peripheral swelling [Unknown]
  - Dizziness [Unknown]
  - Nausea [Unknown]
